FAERS Safety Report 4650713-1 (Version None)
Quarter: 2005Q2

REPORT INFORMATION
  Report Type: 
  Country: None (occurrence: None)
  Receive Date: 20050503
  Receipt Date: 20050228
  Transmission Date: 20051028
  Serious: Yes (Hospitalization)
  Sender: FDA-Public Use
  Company Number: US-BRISTOL-MYERS SQUIBB COMPANY-12885448

PATIENT
  Age: 52 Year
  Sex: Female

DRUGS (2)
  1. COUMADIN [Suspect]
     Route: 048
  2. AVLOSULFON [Interacting]
     Indication: PYODERMA GANGRENOSUM
     Route: 048
     Dates: start: 20050119, end: 20050203

REACTIONS (2)
  - DRUG INTERACTION [None]
  - INTERNATIONAL NORMALISED RATIO INCREASED [None]
